FAERS Safety Report 5177862-6 (Version None)
Quarter: 2006Q4

REPORT INFORMATION
  Report Type: 
  Country: None (occurrence: None)
  Receive Date: 20061218
  Receipt Date: 20060725
  Transmission Date: 20070319
  Serious: No
  Sender: FDA-Public Use
  Company Number: US-AMGEN-KDL187810

PATIENT
  Sex: Female

DRUGS (2)
  1. ENBREL [Suspect]
     Indication: RHEUMATOID ARTHRITIS
     Route: 058
     Dates: start: 20051201
  2. CELLCEPT [Concomitant]
     Route: 048
     Dates: start: 20050101

REACTIONS (4)
  - DYSPHAGIA [None]
  - FALL [None]
  - PARAESTHESIA [None]
  - SPEECH DISORDER [None]
